FAERS Safety Report 15471135 (Version 1)
Quarter: 2018Q4

REPORT INFORMATION
  Report Type: Other
  Country: DE (occurrence: DE)
  Receive Date: 20181006
  Receipt Date: 20181006
  Transmission Date: 20190205
  Serious: Yes (Congenital Anomaly, Other)
  Sender: FDA-Public Use
  Company Number: DE-MACLEODS PHARMACEUTICALS US LTD-MAC2018017154

PATIENT

DRUGS (7)
  1. VALSARTAN. [Suspect]
     Active Substance: VALSARTAN
     Indication: HYPERTENSION
     Dosage: GESTATION PERIOD AT EXPOSURE FROM 0 TO WEEK 8 PLUS DAY 2 OF GESTAT
     Route: 064
  2. AMLODIPINE BESYLATE. [Concomitant]
     Active Substance: AMLODIPINE BESYLATE
     Indication: HYPERTENSION
     Dosage: UNK, GESTATION PERIOD AT EXPOSURE FROM 0 TO WEEK 29 PLUS DAY 3 OF GESTA
     Route: 064
  3. DESLORATADINE. [Concomitant]
     Active Substance: DESLORATADINE
     Indication: HYPERTENSION
     Dosage: UNK, GESTATION PERIOD AT EXPOSURE FROM 0 TO WEEK 9
     Route: 064
  4. METOPROLOL. [Concomitant]
     Active Substance: METOPROLOL
     Indication: HYPERTENSION
     Dosage: UNK, GESTATION PERIOD AT EXPOSURE FROM 0 TO WEEK 9
     Route: 064
  5. HYDROCHLOROTHIAZIDE. [Concomitant]
     Active Substance: HYDROCHLOROTHIAZIDE
     Indication: HYPERTENSION
     Dosage: UNK, GESTATION PERIOD AT EXPOSURE FROM 0 TO WEEK 9
     Route: 064
  6. ALLOPURINOL. [Concomitant]
     Active Substance: ALLOPURINOL
     Indication: HYPERTENSION
     Dosage: UNK, GESTATION PERIOD AT EXPOSURE FROM 0 TO WEEK 9
     Route: 064
  7. METHYLDOPA. [Concomitant]
     Active Substance: METHYLDOPA
     Indication: HYPERTENSION
     Dosage: UNK, GESTATION PERIOD AT EXPOSURE FROM WEEK 9 TO WEEK 39 PLUS DAY 3
     Route: 064

REACTIONS (8)
  - Eyelid ptosis congenital [Unknown]
  - Respiratory distress [Unknown]
  - Patent ductus arteriosus [Unknown]
  - Umbilical hernia [Unknown]
  - Neonatal pneumonia [Unknown]
  - Accidental exposure to product [Unknown]
  - Foetal exposure during pregnancy [Unknown]
  - Infantile apnoea [Unknown]
